FAERS Safety Report 5469912-4 (Version None)
Quarter: 2007Q3

REPORT INFORMATION
  Report Type: 
  Country: None (occurrence: None)
  Receive Date: 20070927
  Receipt Date: 20070918
  Transmission Date: 20080115
  Serious: Yes (Other)
  Sender: FDA-Public Use
  Company Number: US-ELI_LILLY_AND_COMPANY-US200709003001

PATIENT
  Age: 73 Year
  Sex: Male

DRUGS (9)
  1. HUMATROPE [Suspect]
     Indication: PITUITARY TUMOUR REMOVAL
     Dosage: 0.23 MG, DAILY (1/D)
     Route: 065
     Dates: start: 19990101
  2. HYDROCORTISONE [Concomitant]
     Indication: HYPOPITUITARISM
     Dosage: 20 MG, EACH MORNING
     Route: 048
     Dates: start: 19930101
  3. HYDROCORTISONE [Concomitant]
     Dosage: 10 MG, EACH EVENING
     Route: 048
     Dates: start: 19930101
  4. LEVOTHYROXINE SODIUM [Concomitant]
     Indication: HYPOPITUITARISM
     Dosage: 0.1 MG, DAILY (1/D)
     Route: 048
  5. LISINOPRIL [Concomitant]
     Indication: HYPERTENSION
     Dosage: 5 MG, DAILY (1/D)
     Route: 048
  6. AVODART [Concomitant]
     Indication: BENIGN PROSTATIC HYPERPLASIA
     Dosage: 0.5 MG, DAILY (1/D)
     Route: 048
  7. FLOMAX [Concomitant]
     Indication: BENIGN PROSTATIC HYPERPLASIA
     Dosage: 0.4 MG, DAILY (1/D)
     Route: 048
  8. PREVPAC /01423301/ [Concomitant]
     Indication: GASTROOESOPHAGEAL REFLUX DISEASE
     Dosage: UNK, UNK
  9. ANDROGEL [Concomitant]
     Indication: HYPOPITUITARISM
     Dosage: 2.5 G, DAILY (1/D)
     Route: 061

REACTIONS (3)
  - ABDOMINAL HERNIA [None]
  - AORTIC ANEURYSM [None]
  - BASAL CELL CARCINOMA [None]
